FAERS Safety Report 6340702-3 (Version None)
Quarter: 2009Q3

REPORT INFORMATION
  Report Type: 
  Country: None (occurrence: None)
  Receive Date: 20090904
  Receipt Date: 20090825
  Transmission Date: 20100115
  Serious: Yes (Hospitalization)
  Sender: FDA-Public Use
  Company Number: BE-ROCHE-648965

PATIENT
  Sex: Female
  Weight: 73 kg

DRUGS (13)
  1. METHOXY POLYETHYLENE GLYCOL-EPOETIN BETA [Suspect]
     Dosage: LAST DOES PRIOR TO SAE: 19 JUNE 2009, FORM: PREFILLED SYRINGE
     Route: 042
     Dates: start: 20090619
  2. CELLCEPT [Concomitant]
     Dates: start: 20061017
  3. MEDROL [Concomitant]
     Dates: start: 19940801
  4. AMLODIPINE [Concomitant]
  5. ATACAND [Concomitant]
     Dates: start: 20080517
  6. SELOZOK [Concomitant]
  7. PRAREDUCT [Concomitant]
     Dates: start: 20080517
  8. ZYLORIC [Concomitant]
     Dates: start: 20080517
  9. DUPHALAC [Concomitant]
     Dates: start: 20080517
  10. FOSRENOL [Concomitant]
     Dates: start: 20090508
  11. LANTUS [Concomitant]
     Dosage: LANTUS 20 E
     Dates: start: 20080517
  12. NOVORAPID [Concomitant]
     Dosage: NOVORAPID 12-16-18E
     Dates: start: 20080517
  13. OMEPRAZOLE [Concomitant]
     Dates: start: 20081007

REACTIONS (1)
  - GASTROENTERITIS [None]
